FAERS Safety Report 5224200-6 (Version None)
Quarter: 2007Q1

REPORT INFORMATION
  Report Type: 
  Country: None (occurrence: None)
  Receive Date: 20070130
  Receipt Date: 20070124
  Transmission Date: 20070707
  Serious: Yes (Other)
  Sender: FDA-Public Use
  Company Number: BR-SHR-BR-2007-002466

PATIENT
  Age: 28 Year
  Sex: Female

DRUGS (3)
  1. MIRENA [Suspect]
     Indication: CONTRACEPTION
     Dosage: 20 A?G/DAY, CONT
     Route: 015
     Dates: start: 20061010
  2. DIPIRONA [Concomitant]
     Dosage: UNK, UNK
     Route: 048
  3. ANTIINFLAMMATORY/ANTIRHEUMATIC PRODUCTS [Concomitant]
     Dosage: UNK, UNK
     Route: 048

REACTIONS (8)
  - ACNE [None]
  - ASTHENIA [None]
  - HEADACHE [None]
  - MENORRHAGIA [None]
  - PAIN [None]
  - SWELLING [None]
  - THROMBOSIS [None]
  - WEIGHT INCREASED [None]
